FAERS Safety Report 8669868 (Version 2)
Quarter: 2012Q4

REPORT INFORMATION
  Report Type: 
  Country: US (occurrence: US)
  Receive Date: 20120718
  Receipt Date: 20121107
  Transmission Date: 20130627
  Serious: Yes (Hospitalization)
  Sender: FDA-Public Use
  Company Number: US-BAYER-2012-070955

PATIENT
  Age: 24 Year
  Sex: Female
  Weight: 37.19 kg

DRUGS (5)
  1. YAZ [Suspect]
     Indication: PREMENSTRUAL SYNDROME
     Dosage: UNK
     Dates: start: 200607, end: 201005
  2. ELAVIL [Concomitant]
     Indication: ANXIETY
  3. XANAX [Concomitant]
     Indication: ANXIETY
     Dosage: 0.25 mg, UNK
     Route: 048
  4. EMETROL [Concomitant]
     Dosage: On occasion
  5. NSAID^S [Concomitant]

REACTIONS (8)
  - Gallbladder disorder [None]
  - Cholecystitis chronic [None]
  - Injury [None]
  - Pain [None]
  - Fear of disease [None]
  - Pain [None]
  - Anxiety [None]
  - Mental disorder [None]
